FAERS Safety Report 5193828-4 (Version None)
Quarter: 2006Q4

REPORT INFORMATION
  Report Type: 
  Country: None (occurrence: None)
  Receive Date: 20061221
  Receipt Date: 20061211
  Transmission Date: 20070319
  Serious: Yes (Hospitalization)
  Sender: FDA-Public Use
  Company Number: 009432

PATIENT
  Age: 86 Year
  Sex: Female

DRUGS (13)
  1. DANAZOL(DANAZOL) CAPSULE, 200MG [Suspect]
     Indication: ANAEMIA HAEMOLYTIC AUTOIMMUNE
     Dosage: 200 MG, BID, ORAL
     Route: 048
     Dates: start: 20061107, end: 20061112
  2. PREDNISONE TAB [Suspect]
  3. ATENOLOL [Concomitant]
  4. NEXIUM [Concomitant]
  5. FOLIC ACID [Concomitant]
  6. SYNTHROID [Concomitant]
  7. BACTRIM [Concomitant]
  8. SULFASALAZINE [Concomitant]
  9. FLAGYL [Concomitant]
  10. TYLENOL [Concomitant]
  11. OMEPRAZOLE [Concomitant]
  12. XALATAN [Concomitant]
  13. ALTACE [Concomitant]

REACTIONS (6)
  - ALANINE AMINOTRANSFERASE INCREASED [None]
  - ASPARTATE AMINOTRANSFERASE INCREASED [None]
  - CROHN'S DISEASE [None]
  - HEPATIC ENZYME INCREASED [None]
  - HYPONATRAEMIA [None]
  - WEIGHT INCREASED [None]
